FAERS Safety Report 15230486 (Version 1)
Quarter: 2018Q3

REPORT INFORMATION
  Report Type: Spontaneous
  Country: US (occurrence: US)
  Receive Date: 20180802
  Receipt Date: 20180802
  Transmission Date: 20181010
  Serious: No
  Sender: FDA-Public Use
  Company Number: US-TEVA-2018-US-934038

PATIENT
  Sex: Female

DRUGS (1)
  1. NORETHINDRONE W/ETHINYLESTRADIOL [Suspect]
     Active Substance: ETHINYL ESTRADIOL\NORETHINDRONE
     Indication: CONTRACEPTION
     Dosage: DOSE STRENGTH: 0.5 MG/0.035 MG
     Route: 065

REACTIONS (3)
  - Muscle spasms [Unknown]
  - Mood altered [Unknown]
  - Menstrual disorder [Unknown]
